FAERS Safety Report 16803412 (Version 1)
Quarter: 2019Q3

REPORT INFORMATION
  Report Type: Spontaneous
  Country: CA (occurrence: CA)
  Receive Date: 20190913
  Receipt Date: 20190913
  Transmission Date: 20191005
  Serious: Yes (Congenital Anomaly, Other)
  Sender: FDA-Public Use
  Company Number: CA-TEVA-2019-CA-1107904

PATIENT
  Sex: Female

DRUGS (2)
  1. PAROXETINE HYDROCHLORIDE. [Suspect]
     Active Substance: PAROXETINE HYDROCHLORIDE
     Indication: PRODUCT USED FOR UNKNOWN INDICATION
     Dosage: 20 MILLIGRAM DAILY;
     Route: 064
  2. PAROXETINE HYDROCHLORIDE. [Suspect]
     Active Substance: PAROXETINE HYDROCHLORIDE
     Indication: ANXIETY DISORDER
     Route: 064

REACTIONS (6)
  - Foetal growth restriction [Unknown]
  - Foetal exposure during pregnancy [Unknown]
  - Foetal growth abnormality [Unknown]
  - Bladder dilatation [Unknown]
  - Gastroschisis [Unknown]
  - Abdominal wall anomaly [Unknown]
